FAERS Safety Report 10086926 (Version 1)
Quarter: 2014Q2

REPORT INFORMATION
  Report Type: Spontaneous
  Country: FR (occurrence: FR)
  Receive Date: 20140418
  Receipt Date: 20140418
  Transmission Date: 20141212
  Serious: Yes (Hospitalization)
  Sender: FDA-Public Use
  Company Number: FR-PFIZER INC-2014105932

PATIENT
  Age: 77 Year
  Sex: Female

DRUGS (10)
  1. TRIFLUCAN [Suspect]
     Dosage: 400 MG, DAILY
     Route: 042
     Dates: start: 20140303, end: 20140311
  2. VANCOMYCIN [Suspect]
     Indication: ANTIBIOTIC PROPHYLAXIS
     Dosage: 1.5 G, DAILY
     Dates: start: 20140301, end: 20140310
  3. GENTAMYCIN [Suspect]
     Indication: ANTIBIOTIC PROPHYLAXIS
     Dosage: UNK
     Dates: start: 20140301, end: 20140305
  4. AXEPIM [Suspect]
     Indication: ANTIBIOTIC PROPHYLAXIS
     Dosage: 2 G, DAILY
     Route: 042
     Dates: start: 20140301, end: 20140305
  5. TRAMADOL [Concomitant]
  6. TRIMEBUTINE [Concomitant]
  7. PANTOPRAZOLE [Concomitant]
  8. PERFALGAN [Concomitant]
  9. BISOPROLOL [Concomitant]
  10. DISCOTRINE [Concomitant]

REACTIONS (1)
  - Renal failure [Recovering/Resolving]
